FAERS Safety Report 23670772 (Version 1)
Quarter: 2024Q1

REPORT INFORMATION
  Report Type: Spontaneous
  Country: GB (occurrence: GB)
  Receive Date: 20240326
  Receipt Date: 20240326
  Transmission Date: 20240410
  Serious: Yes (Other)
  Sender: FDA-Public Use
  Company Number: GB-CELLTRION INC.-2024GB002491

PATIENT

DRUGS (2)
  1. YUFLYMA [Suspect]
     Active Substance: ADALIMUMAB-AATY
     Indication: Rheumatoid arthritis
     Dosage: 40MG FOR INJECTION PEN PK2
     Route: 058
     Dates: start: 202312
  2. YUFLYMA [Suspect]
     Active Substance: ADALIMUMAB-AATY
     Dosage: 40MG FOR INJECTION PEN PK2
     Route: 058
     Dates: start: 20240122

REACTIONS (6)
  - Loss of consciousness [Unknown]
  - Toothache [Unknown]
  - Visual impairment [Unknown]
  - Sinusitis [Unknown]
  - Headache [Unknown]
  - Anxiety [Unknown]
